FAERS Safety Report 7674802-2 (Version None)
Quarter: 2011Q3

REPORT INFORMATION
  Report Type: 
  Country: None (occurrence: None)
  Receive Date: 20110810
  Receipt Date: 20100215
  Transmission Date: 20111222
  Serious: Yes (Other)
  Sender: FDA-Public Use
  Company Number: FR-GLAXOSMITHKLINE-B0738497A

PATIENT
  Sex: Female

DRUGS (6)
  1. VENTOLIN [Concomitant]
  2. DESLORATADINE [Concomitant]
  3. IMMUNOSTIMULANTS [Concomitant]
  4. NABUMETONE [Suspect]
     Indication: PRODUCT USED FOR UNKNOWN INDICATION
     Dosage: 2TAB PER DAY
     Route: 048
     Dates: start: 20090901, end: 20090901
  5. NASONEX [Concomitant]
  6. SINGULAIR [Concomitant]

REACTIONS (3)
  - ANGIOEDEMA [None]
  - URTICARIA [None]
  - HYPERSENSITIVITY [None]
